FAERS Safety Report 8382818-6 (Version None)
Quarter: 2012Q2

REPORT INFORMATION
  Report Type: 
  Country: None (occurrence: None)
  Receive Date: 20120524
  Receipt Date: 20120515
  Transmission Date: 20120825
  Serious: Yes (Death)
  Sender: FDA-Public Use
  Company Number: DE-JNJFOC-20120512025

PATIENT
  Age: 59 Year
  Sex: Male

DRUGS (4)
  1. PALIPERIDONE [Suspect]
     Route: 030
     Dates: start: 20120101
  2. ALBUTEROL [Concomitant]
     Route: 065
  3. PALIPERIDONE [Suspect]
     Indication: SCHIZOPHRENIA, PARANOID TYPE
     Route: 030
     Dates: end: 20120209
  4. SPIRIVA [Concomitant]
     Route: 065

REACTIONS (2)
  - DEATH [None]
  - INFECTION [None]
